FAERS Safety Report 6399691-8 (Version None)
Quarter: 2009Q4

REPORT INFORMATION
  Report Type: 
  Country: None (occurrence: None)
  Receive Date: 20091014
  Receipt Date: 20091007
  Transmission Date: 20100525
  Serious: Yes (Hospitalization)
  Sender: FDA-Public Use
  Company Number: US-ROCHE-661202

PATIENT
  Sex: Female
  Weight: 83.5 kg

DRUGS (1)
  1. CAPECITABINE [Suspect]
     Indication: BREAST CANCER
     Dosage: DOSE: 500 MG, 3 BID, DRUG ON HOLD
     Route: 048
     Dates: start: 20090409

REACTIONS (4)
  - ANAEMIA [None]
  - DYSPNOEA [None]
  - GASTROINTESTINAL HAEMORRHAGE [None]
  - INTESTINAL MASS [None]
